FAERS Safety Report 7716921-8 (Version None)
Quarter: 2011Q3

REPORT INFORMATION
  Report Type: 
  Country: None (occurrence: None)
  Receive Date: 20110829
  Receipt Date: 20110818
  Transmission Date: 20111222
  Serious: Yes (Hospitalization)
  Sender: FDA-Public Use
  Company Number: US-ASTRAZENECA-2011SE31771

PATIENT
  Age: 68 Year
  Sex: Female

DRUGS (1)
  1. PULMICORT [Suspect]
     Dosage: 0.5 MG/2 CC
     Route: 055

REACTIONS (9)
  - ACTIVITIES OF DAILY LIVING IMPAIRED [None]
  - MYALGIA [None]
  - DRUG DOSE OMISSION [None]
  - ORTHOPNOEA [None]
  - PAIN [None]
  - MEMORY IMPAIRMENT [None]
  - ADVERSE EVENT [None]
  - DYSPNOEA [None]
  - DRUG INEFFECTIVE [None]
